FAERS Safety Report 16477831 (Version 1)
Quarter: 2019Q2

REPORT INFORMATION
  Report Type: Spontaneous
  Country: NL (occurrence: NL)
  Receive Date: 20190626
  Receipt Date: 20190626
  Transmission Date: 20190711
  Serious: Yes (Hospitalization)
  Sender: FDA-Public Use
  Company Number: NL-ACCORD-134997

PATIENT
  Sex: Male
  Weight: 82 kg

DRUGS (6)
  1. METOPROLOL. [Concomitant]
     Active Substance: METOPROLOL
  2. PHENPROCOUMON [Concomitant]
     Active Substance: PHENPROCOUMON
  3. ATORVASTATIN/ATORVASTATIN CALCIUM [Suspect]
     Active Substance: ATORVASTATIN CALCIUM
     Indication: MYOCARDIAL INFARCTION
     Dosage: STRENGTH 80 MG, 1 X PER DAY
     Dates: start: 20180715, end: 20190416
  4. PERINDOPRIL/PERINDOPRIL ERBUMINE [Concomitant]
  5. IRON [Concomitant]
     Active Substance: IRON
  6. CLOPIDOGREL [Concomitant]
     Active Substance: CLOPIDOGREL BISULFATE

REACTIONS (8)
  - Pruritus [Recovered/Resolved]
  - Insomnia [Recovered/Resolved]
  - Myalgia [Recovered/Resolved]
  - Gynaecomastia [Not Recovered/Not Resolved]
  - Arthralgia [Recovered/Resolved]
  - Liver iron concentration increased [Unknown]
  - Petechiae [Recovered/Resolved]
  - Haemorrhage [Unknown]
